FAERS Safety Report 24603996 (Version 2)
Quarter: 2025Q3

REPORT INFORMATION
  Report Type: Spontaneous
  Country: CN (occurrence: CN)
  Receive Date: 20241111
  Receipt Date: 20250810
  Transmission Date: 20251021
  Serious: Yes (Hospitalization, Other)
  Sender: ALEXION PHARMACEUTICALS
  Company Number: CN-ASTRAZENECA-202410CHN024925CN

PATIENT
  Age: 68 Year
  Sex: Female
  Weight: 52.5 kg

DRUGS (2)
  1. BRILINTA [Suspect]
     Active Substance: TICAGRELOR
     Indication: Antiplatelet therapy
     Dosage: 90 MILLIGRAM, BID
     Dates: start: 20240912, end: 20240922
  2. ASPIRIN [Suspect]
     Active Substance: ASPIRIN
     Indication: Antiplatelet therapy
     Dosage: 100 MILLIGRAM, QD
     Dates: start: 20240912, end: 20240922

REACTIONS (3)
  - Upper gastrointestinal haemorrhage [Recovering/Resolving]
  - Anaemia [Recovering/Resolving]
  - Faeces discoloured [Recovered/Resolved]

NARRATIVE: CASE EVENT DATE: 20240919
